FAERS Safety Report 7855769-0 (Version None)
Quarter: 2011Q4

REPORT INFORMATION
  Report Type: 
  Country: None (occurrence: None)
  Receive Date: 20111026
  Receipt Date: 20111014
  Transmission Date: 20120403
  Serious: Yes (Hospitalization)
  Sender: FDA-Public Use
  Company Number: US-GILEAD-2011-0045546

PATIENT
  Age: 76 Year
  Sex: Female

DRUGS (1)
  1. LETAIRIS [Suspect]
     Indication: PRODUCT USED FOR UNKNOWN INDICATION
     Dosage: 10 MG, UNK
     Route: 048
     Dates: start: 20110624, end: 20111014

REACTIONS (5)
  - HEADACHE [None]
  - CANDIDIASIS [None]
  - OEDEMA [None]
  - UNEVALUABLE EVENT [None]
  - DYSPNOEA [None]
